FAERS Safety Report 25285817 (Version 2)
Quarter: 2025Q2

REPORT INFORMATION
  Report Type: Report from Study
  Country: US (occurrence: US)
  Receive Date: 20250509
  Receipt Date: 20250609
  Transmission Date: 20250716
  Serious: No
  Sender: JOHNSON AND JOHNSON
  Company Number: US-JNJFOC-20250416245

PATIENT
  Age: 59 Year
  Sex: Female

DRUGS (1)
  1. GUSELKUMAB [Suspect]
     Active Substance: GUSELKUMAB
     Indication: Psoriasis
     Dosage: SUBCUTANEOUS WEEK 0 12-APR-2025, WEEK 4 THEN EVERY 8 WEEKS THEREAFTER
     Route: 058

REACTIONS (2)
  - Inappropriate schedule of product administration [Unknown]
  - Device leakage [Unknown]

NARRATIVE: CASE EVENT DATE: 20250101
